FAERS Safety Report 16826475 (Version 3)
Quarter: 2020Q3

REPORT INFORMATION
  Report Type: Spontaneous
  Country: US (occurrence: US)
  Receive Date: 20190919
  Receipt Date: 20200824
  Transmission Date: 20201102
  Serious: Yes (Other)
  Sender: FDA-Public Use
  Company Number: US-PFIZER INC-2019401591

PATIENT
  Age: 65 Year
  Sex: Female

DRUGS (1)
  1. IBRANCE [Suspect]
     Active Substance: PALBOCICLIB
     Indication: BREAST CANCER FEMALE
     Dosage: 100 MG

REACTIONS (10)
  - Arthralgia [Unknown]
  - Nausea [Unknown]
  - White blood cell count decreased [Unknown]
  - Pain in extremity [Unknown]
  - Diarrhoea [Unknown]
  - Muscle oedema [Unknown]
  - Back pain [Unknown]
  - Radicular pain [Unknown]
  - Muscle rupture [Unknown]
  - Spinal pain [Unknown]
